FAERS Safety Report 16038100 (Version 1)
Quarter: 2019Q1

REPORT INFORMATION
  Report Type: Spontaneous
  Country: US (occurrence: US)
  Receive Date: 20190305
  Receipt Date: 20190305
  Transmission Date: 20190418
  Serious: No
  Sender: FDA-Public Use
  Company Number: US-EAGLE PHARMACEUTICALS, INC.-US-2018EAG000089

PATIENT

DRUGS (1)
  1. BENDAMUSTINE HCL [Suspect]
     Active Substance: BENDAMUSTINE HYDROCHLORIDE
     Indication: B-CELL LYMPHOMA
     Dosage: 1 1/2 VIALS, DILUTED WITH 50CC OF NORMAL SALINE OVER 10 MINUTES
     Route: 042

REACTIONS (2)
  - Product preparation issue [Unknown]
  - Incorrect product administration duration [Unknown]
